FAERS Safety Report 4446001-9 (Version None)
Quarter: 2004Q3

REPORT INFORMATION
  Report Type: 
  Country: None (occurrence: None)
  Receive Date: 20040907
  Receipt Date: 20040823
  Transmission Date: 20050211
  Serious: Yes (Hospitalization)
  Sender: FDA-Public Use
  Company Number: 2004058255

PATIENT
  Age: 73 Year
  Sex: Female
  Weight: 86.1834 kg

DRUGS (8)
  1. GLUCOTROL XL [Suspect]
     Indication: ILL-DEFINED DISORDER
     Dosage: 10 MG (5 MG, 2 IN 1 D)
     Dates: start: 20000101
  2. GLIPIZIDE [Suspect]
     Indication: DIABETES MELLITUS NON-INSULIN-DEPENDENT
     Dosage: 10 MG (5 MG, 2 IN 1 D) ORAL
     Route: 048
  3. ROSIGLITAZONE MALEATE [Concomitant]
  4. AMLODIPINE BESYLATE [Concomitant]
  5. VASERETIC [Concomitant]
  6. METOPROLOL SUCCINATE [Concomitant]
  7. ESOMEPRAZOLE [Concomitant]
  8. DIMETICONE, ACTIVATED (SIMETICONE) [Concomitant]

REACTIONS (1)
  - SMALL INTESTINAL OBSTRUCTION [None]
